FAERS Safety Report 15454241 (Version 2)
Quarter: 2019Q1

REPORT INFORMATION
  Report Type: Report from Study
  Country: CO (occurrence: CO)
  Receive Date: 20181002
  Receipt Date: 20190114
  Transmission Date: 20190417
  Serious: Yes (Other)
  Sender: FDA-Public Use
  Company Number: CO-ASTELLAS-2018US042393

PATIENT
  Age: 42 Year
  Sex: Female

DRUGS (1)
  1. TACROLIMUS. [Suspect]
     Active Substance: TACROLIMUS
     Indication: LIVER TRANSPLANT
     Route: 048
     Dates: start: 20130517

REACTIONS (3)
  - Bile duct obstruction [Not Recovered/Not Resolved]
  - Colitis [Recovered/Resolved]
  - Transplantation complication [Not Recovered/Not Resolved]

NARRATIVE: CASE EVENT DATE: 201305
